FAERS Safety Report 7243945-X (Version None)
Quarter: 2011Q1

REPORT INFORMATION
  Report Type: 
  Country: None (occurrence: None)
  Receive Date: 20110125
  Receipt Date: 20110118
  Transmission Date: 20110831
  Serious: Yes (Death)
  Sender: FDA-Public Use
  Company Number: B0695814A

PATIENT
  Sex: Male

DRUGS (1)
  1. ZANAMIVIR [Suspect]
     Dosage: 600MG TWICE PER DAY
     Route: 042

REACTIONS (1)
  - DEATH [None]
